FAERS Safety Report 25187482 (Version 2)
Quarter: 2025Q2

REPORT INFORMATION
  Report Type: Spontaneous
  Country: US (occurrence: US)
  Receive Date: 20250411
  Receipt Date: 20250416
  Transmission Date: 20250716
  Serious: Yes (Hospitalization)
  Sender: MERCK SHARP AND DOHME
  Company Number: US-009507513-2273859

PATIENT
  Age: 73 Year
  Sex: Female
  Weight: 89.8 kg

DRUGS (20)
  1. WINREVAIR [Suspect]
     Active Substance: SOTATERCEPT-CSRK
     Dates: start: 202412
  2. WINREVAIR [Suspect]
     Active Substance: SOTATERCEPT-CSRK
  3. WINREVAIR [Suspect]
     Active Substance: SOTATERCEPT-CSRK
  4. WINREVAIR [Suspect]
     Active Substance: SOTATERCEPT-CSRK
  5. OPSUMIT [Concomitant]
     Active Substance: MACITENTAN
  6. OXYGEN [Concomitant]
     Active Substance: OXYGEN
  7. VITAMIN C [Concomitant]
     Active Substance: ASCORBIC ACID
  8. IRON [Concomitant]
     Active Substance: IRON
  9. LOPERAMIDE [Concomitant]
     Active Substance: LOPERAMIDE
  10. REMODULIN [Suspect]
     Active Substance: TREPROSTINIL
     Indication: Pulmonary arterial hypertension
     Route: 041
  11. REMODULIN [Suspect]
     Active Substance: TREPROSTINIL
     Indication: Pulmonary arterial hypertension
     Route: 041
  12. REMODULIN [Suspect]
     Active Substance: TREPROSTINIL
     Indication: Pulmonary arterial hypertension
     Route: 041
     Dates: start: 20241227
  13. CRESTOR [Concomitant]
     Active Substance: ROSUVASTATIN CALCIUM
  14. TYLENOL [Concomitant]
     Active Substance: ACETAMINOPHEN
  15. POTASSIUM CHLORIDE [Concomitant]
     Active Substance: POTASSIUM CHLORIDE
  16. SODIUM CHLORIDE [Concomitant]
     Active Substance: SODIUM CHLORIDE
  17. PROTONIX [Concomitant]
     Active Substance: PANTOPRAZOLE SODIUM
  18. BUMETANIDE [Concomitant]
     Active Substance: BUMETANIDE
  19. VITAMIN D3 [Concomitant]
     Active Substance: CHOLECALCIFEROL
  20. FISH OIL [Concomitant]
     Active Substance: FISH OIL

REACTIONS (1)
  - Diarrhoea [Unknown]

NARRATIVE: CASE EVENT DATE: 20241201
